FAERS Safety Report 7902325-1 (Version None)
Quarter: 2011Q4

REPORT INFORMATION
  Report Type: 
  Country: None (occurrence: None)
  Receive Date: 20111108
  Receipt Date: 20111102
  Transmission Date: 20120403
  Serious: Yes (Hospitalization, Other)
  Sender: FDA-Public Use
  Company Number: US-ACTELION-A-US2011-54498

PATIENT

DRUGS (3)
  1. TRACLEER [Suspect]
     Indication: PULMONARY ARTERIAL HYPERTENSION
     Dosage: UNK MG, BID
     Route: 048
     Dates: start: 20110620, end: 20110901
  2. TRACLEER [Suspect]
     Dosage: UNK MG, OD
     Route: 048
     Dates: start: 20110901, end: 20110901
  3. TRACLEER [Suspect]
     Dosage: UNK MG, BID
     Route: 048
     Dates: start: 20110901

REACTIONS (3)
  - PAIN IN EXTREMITY [None]
  - CHEST PAIN [None]
  - OEDEMA [None]
